FAERS Safety Report 18890095 (Version 1)
Quarter: 2021Q1

REPORT INFORMATION
  Report Type: Spontaneous
  Country: US (occurrence: US)
  Receive Date: 20210214
  Receipt Date: 20210214
  Transmission Date: 20210420
  Serious: No
  Sender: FDA-Public Use
  Company Number: US-SA-2021SA047767

PATIENT
  Sex: Male

DRUGS (6)
  1. DUPIXENT [Suspect]
     Active Substance: DUPILUMAB
     Indication: DERMATITIS ATOPIC
     Dosage: 300 MG, Q4W
     Route: 058
     Dates: start: 20201015
  2. OLOPATADINE. [Concomitant]
     Active Substance: OLOPATADINE
     Dosage: UNK
  3. FLAREX [Concomitant]
     Active Substance: FLUOROMETHOLONE ACETATE
  4. HYDROCORT [HYDROCORTISONE;NEOMYCIN SULFATE] [Concomitant]
     Dosage: UNK
  5. HALOBETASOL [Concomitant]
     Active Substance: HALOBETASOL PROPIONATE
  6. DIPHENHYDRAMINE HYDROCHLORIDE. [Concomitant]
     Active Substance: DIPHENHYDRAMINE HYDROCHLORIDE

REACTIONS (1)
  - Dermatitis atopic [Unknown]
